FAERS Safety Report 21823020 (Version 2)
Quarter: 2023Q1

REPORT INFORMATION
  Report Type: Spontaneous
  Country: US (occurrence: US)
  Receive Date: 20230105
  Receipt Date: 20230203
  Transmission Date: 20230417
  Serious: Yes (Hospitalization)
  Sender: FDA-Public Use
  Company Number: US-SA-SAC20230104000650

PATIENT
  Sex: Female

DRUGS (4)
  1. DUPIXENT [Suspect]
     Active Substance: DUPILUMAB
     Indication: Asthma
     Dosage: 300 MG, QOW
     Route: 058
     Dates: start: 20210115
  2. RINVOQ [Concomitant]
     Active Substance: UPADACITINIB
  3. METHYLPREDNISOLONE [Concomitant]
     Active Substance: METHYLPREDNISOLONE
  4. CORTICOSTEROID NOS [Concomitant]
     Active Substance: CORTICOSTEROID NOS

REACTIONS (6)
  - Urinary tract infection [Unknown]
  - Immune system disorder [Unknown]
  - Decubitus ulcer [Unknown]
  - Hospitalisation [Unknown]
  - Asthma [Unknown]
  - Impaired quality of life [Unknown]
